FAERS Safety Report 14913102 (Version 4)
Quarter: 2018Q3

REPORT INFORMATION
  Report Type: Spontaneous
  Country: GB (occurrence: GB)
  Receive Date: 20180518
  Receipt Date: 20180914
  Transmission Date: 20181010
  Serious: Yes (Other)
  Sender: FDA-Public Use
  Company Number: PHHY2018GB008052

PATIENT
  Age: 75 Year
  Sex: Female
  Weight: 50 kg

DRUGS (4)
  1. VITAMIN D3 [Concomitant]
     Active Substance: CHOLECALCIFEROL
     Indication: PRODUCT USED FOR UNKNOWN INDICATION
     Route: 065
  2. ZOMETA [Suspect]
     Active Substance: ZOLEDRONIC ACID
     Indication: OSTEOPOROSIS
     Dosage: 4 ML/100 ML, ONCE/SINGLE
     Route: 041
  3. PANTOPRAZOL [Concomitant]
     Active Substance: PANTOPRAZOLE SODIUM
     Indication: PRODUCT USED FOR UNKNOWN INDICATION
     Route: 065
  4. ACLASTA [Suspect]
     Active Substance: ZOLEDRONIC ACID
     Indication: PRODUCT USED FOR UNKNOWN INDICATION
     Route: 065

REACTIONS (49)
  - Body temperature fluctuation [Unknown]
  - Dizziness [Not Recovered/Not Resolved]
  - Injection site rash [Unknown]
  - Vasodilatation [Unknown]
  - Joint swelling [Unknown]
  - Hypertension [Unknown]
  - Nausea [Not Recovered/Not Resolved]
  - Swelling [Unknown]
  - Nasopharyngitis [Unknown]
  - Hyperhidrosis [Unknown]
  - Memory impairment [Unknown]
  - Urinary tract infection [Unknown]
  - Neck pain [Unknown]
  - Injection site swelling [Unknown]
  - Hypoaesthesia [Unknown]
  - Arthralgia [Unknown]
  - Tremor [Unknown]
  - Polyglandular disorder [Not Recovered/Not Resolved]
  - Back pain [Unknown]
  - Insomnia [Unknown]
  - Peripheral swelling [Unknown]
  - Asthenia [Unknown]
  - Malaise [Unknown]
  - Abdominal pain [Unknown]
  - Hypokinesia [Unknown]
  - Muscle swelling [Unknown]
  - Pain [Unknown]
  - Feeling hot [Unknown]
  - Pollakiuria [Unknown]
  - Psychiatric symptom [Unknown]
  - Influenza like illness [Unknown]
  - Musculoskeletal pain [Unknown]
  - Confusional state [Unknown]
  - Chest pain [Unknown]
  - Cold sweat [Unknown]
  - Oropharyngeal pain [Unknown]
  - Paraesthesia [Not Recovered/Not Resolved]
  - Decreased appetite [Unknown]
  - Photophobia [Unknown]
  - Blood urine present [Unknown]
  - Weight decreased [Unknown]
  - Chest discomfort [Unknown]
  - Peripheral coldness [Unknown]
  - Dehydration [Not Recovered/Not Resolved]
  - Fatigue [Unknown]
  - Pain in extremity [Unknown]
  - Tinnitus [Unknown]
  - Muscle spasms [Unknown]
  - Product use in unapproved indication [Unknown]

NARRATIVE: CASE EVENT DATE: 20180420
